FAERS Safety Report 15767960 (Version 1)
Quarter: 2018Q4

REPORT INFORMATION
  Report Type: Spontaneous
  Country: US (occurrence: US)
  Receive Date: 20181227
  Receipt Date: 20181227
  Transmission Date: 20190205
  Serious: No
  Sender: FDA-Public Use
  Company Number: US-GE HEALTHCARE LIFE SCIENCES-2018CSU004771

PATIENT
  Age: 52 Year
  Sex: Female

DRUGS (9)
  1. OMNIPAQUE [Suspect]
     Active Substance: IOHEXOL
     Indication: LYMPHADENOPATHY
     Dosage: 100 ML, SINGLE
     Route: 042
     Dates: start: 20181121, end: 20181121
  2. GLUCOPHAGE [Concomitant]
     Active Substance: METFORMIN HYDROCHLORIDE
  3. PROTONIX [Concomitant]
     Active Substance: PANTOPRAZOLE SODIUM
  4. HYDRODIURIL [Concomitant]
     Active Substance: HYDROCHLOROTHIAZIDE
  5. ZOLOFT [Concomitant]
     Active Substance: SERTRALINE HYDROCHLORIDE
  6. NEURONTIN [Concomitant]
     Active Substance: GABAPENTIN
  7. COZAAR [Concomitant]
     Active Substance: LOSARTAN POTASSIUM
  8. COREG [Concomitant]
     Active Substance: CARVEDILOL
  9. LASIX [Concomitant]
     Active Substance: FUROSEMIDE

REACTIONS (1)
  - Urticaria [Recovered/Resolved]

NARRATIVE: CASE EVENT DATE: 20181121
